FAERS Safety Report 14020568 (Version 1)
Quarter: 2017Q3

REPORT INFORMATION
  Report Type: Spontaneous
  Country: US (occurrence: US)
  Receive Date: 20170928
  Receipt Date: 20170928
  Transmission Date: 20171128
  Serious: Yes (Hospitalization, Other)
  Sender: FDA-Public Use
  Company Number: US-PFIZER INC-2006029439

PATIENT
  Age: 67 Year
  Sex: Female
  Weight: 44 kg

DRUGS (2)
  1. CELEBREX [Suspect]
     Active Substance: CELECOXIB
     Indication: ARTHRITIS
     Dosage: 200 MG, 2X/DAY
     Route: 065
     Dates: start: 20001030, end: 20031220
  2. CELEBREX [Suspect]
     Active Substance: CELECOXIB
     Dosage: 400 MG, DAILY
     Dates: start: 20020730, end: 20031227

REACTIONS (2)
  - Ischaemic stroke [Unknown]
  - Myocardial infarction [Unknown]

NARRATIVE: CASE EVENT DATE: 20031220
